FAERS Safety Report 24259462 (Version 1)
Quarter: 2024Q3

REPORT INFORMATION
  Report Type: Spontaneous
  Country: US (occurrence: None)
  Receive Date: 20240828
  Receipt Date: 20240828
  Transmission Date: 20241017
  Serious: Yes (Other)
  Sender: ASTRAZENECA
  Company Number: 2024A190264

PATIENT
  Sex: Female

DRUGS (2)
  1. CRESTOR [Suspect]
     Active Substance: ROSUVASTATIN CALCIUM
     Route: 048
  2. TOPROL XL [Suspect]
     Active Substance: METOPROLOL SUCCINATE
     Route: 048
     Dates: start: 2007

REACTIONS (7)
  - Coronary artery occlusion [Unknown]
  - Breast cancer [Unknown]
  - Thyroid cancer [Unknown]
  - Thyroid cancer recurrent [Unknown]
  - Product use issue [Unknown]
  - Alopecia [Unknown]
  - Therapy cessation [Unknown]
